FAERS Safety Report 12629191 (Version 1)
Quarter: 2016Q3

REPORT INFORMATION
  Report Type: Report from Study
  Country: JP (occurrence: JP)
  Receive Date: 20160808
  Receipt Date: 20160808
  Transmission Date: 20161109
  Serious: Yes (Hospitalization, Other)
  Sender: FDA-Public Use
  Company Number: PHJP2016JP000626

PATIENT
  Age: 72 Year
  Sex: Male

DRUGS (49)
  1. OFATUMUMAB [Suspect]
     Active Substance: OFATUMUMAB
     Dosage: 2000 MG, QD
     Route: 041
     Dates: start: 20160223, end: 20160223
  2. OFATUMUMAB [Suspect]
     Active Substance: OFATUMUMAB
     Dosage: 2000 MG, QD
     Route: 041
     Dates: start: 20160322, end: 20160322
  3. OFATUMUMAB [Suspect]
     Active Substance: OFATUMUMAB
     Dosage: 2000 MG, QD
     Route: 041
     Dates: start: 20160628, end: 20160628
  4. PREDNISONE. [Concomitant]
     Active Substance: PREDNISONE
     Dosage: 100 MG, QD
     Route: 065
     Dates: start: 20160209, end: 20160209
  5. ACETAMINOPHEN. [Concomitant]
     Active Substance: ACETAMINOPHEN
     Dosage: 400 MG, QD
     Route: 065
     Dates: start: 20160322, end: 20160322
  6. POLARAMINE [Concomitant]
     Active Substance: DEXCHLORPHENIRAMINE MALEATE
     Dosage: 5 MG, QD
     Route: 065
     Dates: start: 20160223, end: 20160223
  7. OFATUMUMAB [Suspect]
     Active Substance: OFATUMUMAB
     Dosage: 2000 MG, QD
     Route: 041
     Dates: start: 20160119, end: 20160119
  8. OFATUMUMAB [Suspect]
     Active Substance: OFATUMUMAB
     Dosage: 2000 MG, QD
     Route: 041
     Dates: start: 20160202, end: 20160202
  9. PREDNISONE. [Concomitant]
     Active Substance: PREDNISONE
     Dosage: 100 MG, QD
     Route: 065
     Dates: start: 20160119, end: 20160119
  10. PREDNISONE. [Concomitant]
     Active Substance: PREDNISONE
     Dosage: 100 MG, QD
     Route: 065
     Dates: start: 20160322, end: 20160322
  11. PREDNISONE. [Concomitant]
     Active Substance: PREDNISONE
     Dosage: 100 MG, QD
     Route: 065
     Dates: start: 20160419, end: 20160419
  12. PREDNISONE. [Concomitant]
     Active Substance: PREDNISONE
     Dosage: 100 MG, QD
     Route: 065
     Dates: start: 20160517, end: 20160517
  13. PREDNISONE. [Concomitant]
     Active Substance: PREDNISONE
     Dosage: 100 MG, QD
     Route: 065
     Dates: start: 20160628, end: 20160628
  14. ACETAMINOPHEN. [Concomitant]
     Active Substance: ACETAMINOPHEN
     Dosage: 400 MG, QD
     Route: 065
     Dates: start: 20160216, end: 20160216
  15. ACETAMINOPHEN. [Concomitant]
     Active Substance: ACETAMINOPHEN
     Dosage: 400 MG, QD
     Route: 065
     Dates: start: 20160223, end: 20160223
  16. ACETAMINOPHEN. [Concomitant]
     Active Substance: ACETAMINOPHEN
     Dosage: 400 MG, QD
     Route: 065
     Dates: start: 20160517, end: 20160517
  17. POLARAMINE [Concomitant]
     Active Substance: DEXCHLORPHENIRAMINE MALEATE
     Dosage: 5 MG, QD
     Route: 065
     Dates: start: 20160126, end: 20160126
  18. POLARAMINE [Concomitant]
     Active Substance: DEXCHLORPHENIRAMINE MALEATE
     Dosage: 5 MG, QD
     Route: 065
     Dates: start: 20160216, end: 20160216
  19. POLARAMINE [Concomitant]
     Active Substance: DEXCHLORPHENIRAMINE MALEATE
     Dosage: 5 MG, QD
     Route: 065
     Dates: start: 20160119, end: 20160119
  20. POLARAMINE [Concomitant]
     Active Substance: DEXCHLORPHENIRAMINE MALEATE
     Dosage: 5 MG, QD
     Route: 065
     Dates: start: 20160209, end: 20160209
  21. POLARAMINE [Concomitant]
     Active Substance: DEXCHLORPHENIRAMINE MALEATE
     Dosage: 5 MG, QD
     Route: 065
     Dates: start: 20160322, end: 20160322
  22. POLARAMINE [Concomitant]
     Active Substance: DEXCHLORPHENIRAMINE MALEATE
     Dosage: 5 MG, QD
     Route: 065
     Dates: start: 20160517, end: 20160517
  23. OFATUMUMAB [Suspect]
     Active Substance: OFATUMUMAB
     Dosage: 2000 MG, QD
     Route: 041
     Dates: start: 20160419, end: 20160419
  24. PREDNISONE. [Concomitant]
     Active Substance: PREDNISONE
     Dosage: 100 MG, QD
     Route: 065
     Dates: start: 20160126, end: 20160126
  25. PREDNISONE. [Concomitant]
     Active Substance: PREDNISONE
     Dosage: 100 MG, QD
     Route: 065
     Dates: start: 20160223, end: 20160223
  26. ACETAMINOPHEN. [Concomitant]
     Active Substance: ACETAMINOPHEN
     Dosage: 400 MG, QD
     Route: 065
     Dates: start: 20160112, end: 20160112
  27. ACETAMINOPHEN. [Concomitant]
     Active Substance: ACETAMINOPHEN
     Dosage: 400 MG, QD
     Route: 065
     Dates: start: 20160202, end: 20160202
  28. POLARAMINE [Concomitant]
     Active Substance: DEXCHLORPHENIRAMINE MALEATE
     Indication: PRODUCT USED FOR UNKNOWN INDICATION
     Dosage: 5 MG, QD
     Route: 065
     Dates: start: 20160105, end: 20160105
  29. OFATUMUMAB [Suspect]
     Active Substance: OFATUMUMAB
     Dosage: 2000 MG, QD
     Route: 041
     Dates: start: 20160126, end: 20160126
  30. OFATUMUMAB [Suspect]
     Active Substance: OFATUMUMAB
     Dosage: 2000 MG, QD
     Route: 041
     Dates: start: 20160209, end: 20160209
  31. OFATUMUMAB [Suspect]
     Active Substance: OFATUMUMAB
     Dosage: 2000 MG, QD
     Route: 041
     Dates: start: 20160517, end: 20160517
  32. PREDNISONE. [Concomitant]
     Active Substance: PREDNISONE
     Dosage: 100 MG, QD
     Route: 065
     Dates: start: 20160112, end: 20160112
  33. POLARAMINE [Concomitant]
     Active Substance: DEXCHLORPHENIRAMINE MALEATE
     Dosage: 5 MG, QD
     Route: 065
     Dates: start: 20160112, end: 20160112
  34. OFATUMUMAB [Suspect]
     Active Substance: OFATUMUMAB
     Indication: CHRONIC LYMPHOCYTIC LEUKAEMIA
     Dosage: 300 MG, QD
     Route: 041
     Dates: start: 20160105, end: 20160105
  35. ACETAMINOPHEN. [Concomitant]
     Active Substance: ACETAMINOPHEN
     Dosage: 400 MG, QD
     Route: 065
     Dates: start: 20160119, end: 20160119
  36. ACETAMINOPHEN. [Concomitant]
     Active Substance: ACETAMINOPHEN
     Dosage: 400 MG, QD
     Route: 065
     Dates: start: 20160126, end: 20160126
  37. ACETAMINOPHEN. [Concomitant]
     Active Substance: ACETAMINOPHEN
     Dosage: 400 MG, QD
     Route: 065
     Dates: start: 20160209, end: 20160209
  38. ACETAMINOPHEN. [Concomitant]
     Active Substance: ACETAMINOPHEN
     Dosage: 400 MG, QD
     Route: 065
     Dates: start: 20160419, end: 20160419
  39. POLARAMINE [Concomitant]
     Active Substance: DEXCHLORPHENIRAMINE MALEATE
     Dosage: 5 MG, QD
     Route: 065
     Dates: start: 20160628, end: 20160628
  40. OFATUMUMAB [Suspect]
     Active Substance: OFATUMUMAB
     Dosage: 2000 MG, QD
     Route: 041
     Dates: start: 20160216, end: 20160216
  41. PREDNISONE. [Concomitant]
     Active Substance: PREDNISONE
     Indication: PRODUCT USED FOR UNKNOWN INDICATION
     Dosage: 100 MG, QD
     Route: 065
     Dates: start: 20160105, end: 20160105
  42. PREDNISONE. [Concomitant]
     Active Substance: PREDNISONE
     Dosage: 100 MG, QD
     Route: 065
     Dates: start: 20160202, end: 20160202
  43. PREDNISONE. [Concomitant]
     Active Substance: PREDNISONE
     Dosage: 100 MG, QD
     Route: 065
     Dates: start: 20160216, end: 20160216
  44. POLARAMINE [Concomitant]
     Active Substance: DEXCHLORPHENIRAMINE MALEATE
     Dosage: 5 MG, QD
     Route: 065
     Dates: start: 20160202, end: 20160202
  45. POLARAMINE [Concomitant]
     Active Substance: DEXCHLORPHENIRAMINE MALEATE
     Dosage: 5 MG, QD
     Route: 065
     Dates: start: 20160419, end: 20160419
  46. INSULIN [Concomitant]
     Active Substance: INSULIN NOS
     Indication: DIABETES MELLITUS
     Dosage: UNK
     Route: 065
  47. OFATUMUMAB [Suspect]
     Active Substance: OFATUMUMAB
     Dosage: 2000 MG, QD
     Route: 041
     Dates: start: 20160112, end: 20160112
  48. ACETAMINOPHEN. [Concomitant]
     Active Substance: ACETAMINOPHEN
     Indication: PRODUCT USED FOR UNKNOWN INDICATION
     Dosage: 400 MG, QD
     Route: 065
     Dates: start: 20160105, end: 20160105
  49. ACETAMINOPHEN. [Concomitant]
     Active Substance: ACETAMINOPHEN
     Dosage: 400 MG, QD
     Route: 065
     Dates: start: 20160628, end: 20160628

REACTIONS (4)
  - Head discomfort [Recovered/Resolved]
  - Chills [Recovered/Resolved]
  - Pyrexia [Recovered/Resolved]
  - Bronchitis [Recovering/Resolving]

NARRATIVE: CASE EVENT DATE: 20160105
